FAERS Safety Report 7469629-0 (Version None)
Quarter: 2011Q2

REPORT INFORMATION
  Report Type: 
  Country: None (occurrence: None)
  Receive Date: 20110429
  Receipt Date: 20110413
  Transmission Date: 20111010
  Serious: Yes (Other)
  Sender: FDA-Public Use
  Company Number: 028788

PATIENT
  Sex: Female

DRUGS (1)
  1. CIMZIA [Suspect]
     Indication: CROHN'S DISEASE
     Dosage: (SUBCUTANEOUS)
     Route: 058
     Dates: start: 20110228

REACTIONS (5)
  - ERYTHEMA [None]
  - PALPITATIONS [None]
  - FLUSHING [None]
  - FEELING HOT [None]
  - PARAESTHESIA [None]
